FAERS Safety Report 25787809 (Version 1)
Quarter: 2025Q3

REPORT INFORMATION
  Report Type: Spontaneous
  Country: IN (occurrence: IN)
  Receive Date: 20250910
  Receipt Date: 20250910
  Transmission Date: 20251020
  Serious: Yes (Other)
  Sender: MYLAN
  Company Number: IN-MYLANLABS-2025M1076677

PATIENT
  Age: 64 Year
  Sex: Male

DRUGS (5)
  1. DOXORUBICIN [Suspect]
     Active Substance: DOXORUBICIN
     Indication: Mantle cell lymphoma
  2. CYCLOPHOSPHAMIDE [Suspect]
     Active Substance: CYCLOPHOSPHAMIDE
     Indication: Mantle cell lymphoma
  3. ONCOVIN [Suspect]
     Active Substance: VINCRISTINE SULFATE
     Indication: Mantle cell lymphoma
  4. PREDNISONE [Suspect]
     Active Substance: PREDNISONE
     Indication: Mantle cell lymphoma
  5. PREGABALIN [Concomitant]
     Active Substance: PREGABALIN
     Indication: Neuropathy peripheral

REACTIONS (4)
  - Mucosal inflammation [Recovered/Resolved]
  - Pyrexia [Recovered/Resolved]
  - Mouth ulceration [Recovered/Resolved]
  - Toxicity to various agents [Recovered/Resolved]
